FAERS Safety Report 21922448 (Version 1)
Quarter: 2023Q1

REPORT INFORMATION
  Report Type: Spontaneous
  Country: US (occurrence: US)
  Receive Date: 20230128
  Receipt Date: 20230128
  Transmission Date: 20230417
  Serious: No
  Sender: FDA-Public Use
  Company Number: US-ELI_LILLY_AND_COMPANY-US202301012572

PATIENT
  Age: 45 Year
  Sex: Female

DRUGS (1)
  1. TALTZ [Suspect]
     Active Substance: IXEKIZUMAB
     Indication: Product used for unknown indication
     Dosage: 160 MG, UNKNOWN
     Route: 058
     Dates: start: 202301

REACTIONS (3)
  - Injection site pruritus [Unknown]
  - Injection site rash [Unknown]
  - Injection site induration [Unknown]

NARRATIVE: CASE EVENT DATE: 20230125
